FAERS Safety Report 20852297 (Version 2)
Quarter: 2022Q2

REPORT INFORMATION
  Report Type: Spontaneous
  Country: FR (occurrence: FR)
  Receive Date: 20220520
  Receipt Date: 20220603
  Transmission Date: 20220720
  Serious: Yes (Hospitalization)
  Sender: FDA-Public Use
  Company Number: FR-SUN PHARMACEUTICAL INDUSTRIES LTD-2022RR-337391

PATIENT
  Age: 33 Year
  Sex: Male
  Weight: 53 kg

DRUGS (8)
  1. VALACYCLOVIR [Suspect]
     Active Substance: VALACYCLOVIR HYDROCHLORIDE
     Indication: Prophylaxis against transplant rejection
     Dosage: NR ()
     Route: 048
     Dates: start: 20220207
  2. GANCICLOVIR [Suspect]
     Active Substance: GANCICLOVIR
     Indication: Prophylaxis against transplant rejection
     Dosage: 250MG X2/DAY ()
     Route: 048
     Dates: start: 20220122, end: 20220207
  3. CELLCEPT [Suspect]
     Active Substance: MYCOPHENOLATE MOFETIL
     Indication: Prophylaxis against transplant rejection
     Dosage: 500MG/DAY ()
     Route: 048
     Dates: start: 20220122
  4. CYCLOSPORINE [Suspect]
     Active Substance: CYCLOSPORINE
     Indication: Prophylaxis against transplant rejection
     Dosage: 100MG/ML ()
     Route: 042
     Dates: start: 20220122, end: 20220203
  5. MEROPENEM [Suspect]
     Active Substance: MEROPENEM
     Indication: Prophylaxis against transplant rejection
     Dosage: 6G/DAY ()
     Route: 042
     Dates: start: 20220122, end: 20220211
  6. PROGRAF [Suspect]
     Active Substance: TACROLIMUS
     Indication: Prophylaxis against transplant rejection
     Dosage: 1MG ()
     Route: 048
     Dates: start: 20220203
  7. METHYLPREDNISOLONE [Suspect]
     Active Substance: METHYLPREDNISOLONE
     Indication: Prophylaxis against transplant rejection
     Dosage: NR ()
     Route: 042
     Dates: start: 20220122
  8. AMBISOME [Suspect]
     Active Substance: AMPHOTERICIN B
     Indication: Prophylaxis against transplant rejection
     Dosage: 150MG/DAY ()
     Route: 042
     Dates: start: 20220122

REACTIONS (2)
  - Cholestasis [Not Recovered/Not Resolved]
  - Hepatic cytolysis [Recovering/Resolving]

NARRATIVE: CASE EVENT DATE: 20220122
